FAERS Safety Report 9341578 (Version 1)
Quarter: 2013Q2

REPORT INFORMATION
  Report Type: Report from Study
  Country: IT (occurrence: IT)
  Receive Date: 20130611
  Receipt Date: 20130611
  Transmission Date: 20140414
  Serious: Yes (Death)
  Sender: FDA-Public Use
  Company Number: IT-CELGENEUS-083-21880-13060101

PATIENT
  Age: 78 Year
  Sex: Female

DRUGS (2)
  1. REVLIMID [Suspect]
     Indication: PLASMA CELL MYELOMA
     Route: 048
     Dates: start: 20120625
  2. REVLIMID [Suspect]
     Route: 048
     Dates: end: 20130127

REACTIONS (1)
  - Death [Fatal]
